FAERS Safety Report 5520181-6 (Version None)
Quarter: 2007Q4

REPORT INFORMATION
  Report Type: 
  Country: None (occurrence: None)
  Receive Date: 20071116
  Receipt Date: 20071108
  Transmission Date: 20080405
  Serious: Yes (Other)
  Sender: FDA-Public Use
  Company Number: US-GILEAD-2007-0014312

PATIENT
  Age: 55 Year
  Sex: Male

DRUGS (1)
  1. VIREAD [Suspect]
     Indication: HIV INFECTION
     Dates: start: 20021101, end: 20070101

REACTIONS (1)
  - SPINAL COMPRESSION FRACTURE [None]
